FAERS Safety Report 25080015 (Version 3)
Quarter: 2025Q1

REPORT INFORMATION
  Report Type: Spontaneous
  Country: US (occurrence: US)
  Receive Date: 20250314
  Receipt Date: 20250328
  Transmission Date: 20250408
  Serious: No
  Sender: PFIZER
  Company Number: US-PFIZER INC-202500045615

PATIENT
  Age: 78 Year
  Sex: Female

DRUGS (2)
  1. PHENELZINE SULFATE [Suspect]
     Active Substance: PHENELZINE SULFATE
     Indication: Panic attack
     Dosage: 15 MG, ALTERNATE DAY (ALTERNATE 1 + 2 DAILY AT PM)
     Route: 048
     Dates: start: 1982
  2. PHENELZINE SULFATE [Suspect]
     Active Substance: PHENELZINE SULFATE
     Dosage: 30 MG, ALTERNATE DAY (ALTERNATE 1 + 2 DAILY AT PM)
     Route: 048
     Dates: start: 1982

REACTIONS (4)
  - Panic attack [Unknown]
  - Condition aggravated [Unknown]
  - Therapeutic product effect incomplete [Unknown]
  - Off label use [Unknown]
